FAERS Safety Report 8406838 (Version 8)
Quarter: 2013Q4

REPORT INFORMATION
  Report Type: Report from Study
  Country: ES (occurrence: ES)
  Receive Date: 20120203
  Receipt Date: 20131031
  Transmission Date: 20140711
  Serious: Yes (Other)
  Sender: FDA-Public Use
  Company Number: ES-009507513-2012SP005357

PATIENT
  Age: 56 Year
  Sex: Male

DRUGS (5)
  1. BOCEPREVIR [Suspect]
     Indication: HEPATITIS C
     Dosage: 800 MG, TID
     Route: 065
     Dates: start: 201112, end: 201112
  2. BOCEPREVIR [Suspect]
     Indication: HEPATIC CIRRHOSIS
  3. MK-8908 [Suspect]
     Indication: HEPATITIS C
     Dosage: 1200 MG, QD
     Route: 065
     Dates: start: 201112
  4. MK-8908 [Suspect]
     Indication: HEPATIC CIRRHOSIS
  5. PEGINTERFERON ALFA-2A [Suspect]
     Dosage: 180 ?G, QW
     Route: 065
     Dates: start: 201112

REACTIONS (2)
  - Neutropenic colitis [Recovered/Resolved]
  - Colitis [Unknown]
